FAERS Safety Report 5679851-1 (Version None)
Quarter: 2008Q1

REPORT INFORMATION
  Report Type: 
  Country: None (occurrence: None)
  Receive Date: 20080324
  Receipt Date: 20080313
  Transmission Date: 20080703
  Serious: Yes (Hospitalization)
  Sender: FDA-Public Use
  Company Number: CHNY2008MX01289

PATIENT
  Age: 69 Year
  Sex: Male

DRUGS (1)
  1. SENOKOT-F TABLETS (NCH)(SENNA GLYCOSIDES (CA SALTS OF PURIFIED SENNA E [Suspect]
     Indication: CONSTIPATION
     Dosage: 2 TABLETS PER DAY, ORAL, 4 TABLETS PER DAY, ORAL
     Route: 048
     Dates: start: 20080311

REACTIONS (2)
  - CONSTIPATION [None]
  - PROSTATIC OPERATION [None]
